FAERS Safety Report 21425594 (Version 2)
Quarter: 2022Q4

REPORT INFORMATION
  Report Type: Report from Study
  Country: EG (occurrence: EG)
  Receive Date: 20221008
  Receipt Date: 20221014
  Transmission Date: 20230113
  Serious: Yes (Other)
  Sender: FDA-Public Use
  Company Number: EG-NOVARTISPH-NVSC2022EG222980

PATIENT
  Age: 83 Year
  Sex: Female

DRUGS (9)
  1. ENTRESTO [Suspect]
     Active Substance: SACUBITRIL\VALSARTAN
     Indication: Cardiac failure
     Dosage: 1 DOSAGE FORM, BID
     Route: 048
     Dates: start: 202202
  2. PANTOPRAZOLE SODIUM [Concomitant]
     Active Substance: PANTOPRAZOLE SODIUM
     Indication: Product used for unknown indication
     Dosage: 1 DOSAGE FORM, QD
     Route: 048
     Dates: start: 202202
  3. ASPIRIN [Concomitant]
     Active Substance: ASPIRIN
     Indication: Anticoagulant therapy
     Dosage: 1 DOSAGE FORM, QD
     Route: 048
     Dates: start: 202202
  4. EXAMIDE [Concomitant]
     Indication: Oedema
     Dosage: 1 DOSAGE FORM (EVERY 3 DAYS)
     Route: 048
     Dates: start: 202202
  5. IVABRADINE [Concomitant]
     Active Substance: IVABRADINE
     Indication: Heart rate irregular
     Dosage: UNK
     Route: 048
     Dates: start: 202202
  6. CRESTOR [Concomitant]
     Active Substance: ROSUVASTATIN CALCIUM
     Indication: Blood cholesterol abnormal
     Dosage: UNK, QD
     Route: 048
     Dates: start: 202202
  7. MOTILIUM [Concomitant]
     Active Substance: DOMPERIDONE
     Indication: Product used for unknown indication
     Dosage: UNK, QD
     Route: 048
     Dates: start: 202202
  8. GLIMEPIRIDE [Concomitant]
     Active Substance: GLIMEPIRIDE
     Indication: Diabetes mellitus
     Dosage: 0.5 DOSAGE FORM, QD
     Route: 048
     Dates: start: 202202
  9. NEUROVIT [Concomitant]
     Indication: Nervous system disorder
     Dosage: UNK, QD
     Route: 048
     Dates: start: 202202

REACTIONS (4)
  - Pulmonary oedema [Recovering/Resolving]
  - Constipation [Not Recovered/Not Resolved]
  - Blood urea increased [Recovering/Resolving]
  - Insomnia [Not Recovered/Not Resolved]

NARRATIVE: CASE EVENT DATE: 20220201
